FAERS Safety Report 7015216-8 (Version None)
Quarter: 2010Q3

REPORT INFORMATION
  Report Type: 
  Country: None (occurrence: None)
  Receive Date: 20100927
  Receipt Date: 20100917
  Transmission Date: 20110219
  Serious: Yes (Other)
  Sender: FDA-Public Use
  Company Number: PHHY2010DE45694

PATIENT
  Sex: Male

DRUGS (4)
  1. RASILEZ [Suspect]
     Indication: MALIGNANT HYPERTENSION
     Dosage: 0.5 DF, QD
     Dates: start: 20100610, end: 20100614
  2. INSULIN [Concomitant]
  3. RAMIPRIL [Concomitant]
     Dosage: 10 MG/D
     Route: 048
  4. METOPROLOL TARTRATE [Concomitant]
     Dosage: 95 MG/D
     Route: 048

REACTIONS (7)
  - ANAPHYLACTIC REACTION [None]
  - ANGIOEDEMA [None]
  - BLOOD CREATININE INCREASED [None]
  - DERMATITIS ALLERGIC [None]
  - LIP SWELLING [None]
  - RASH [None]
  - SENSATION OF FOREIGN BODY [None]
